FAERS Safety Report 20887331 (Version 2)
Quarter: 2022Q2

REPORT INFORMATION
  Report Type: Spontaneous
  Country: IN (occurrence: IN)
  Receive Date: 20220528
  Receipt Date: 20220615
  Transmission Date: 20220720
  Serious: Yes (Other)
  Sender: FDA-Public Use
  Company Number: IN-Accord-264384

PATIENT
  Age: 51 Year
  Sex: Male

DRUGS (3)
  1. DOCETAXEL [Suspect]
     Active Substance: DOCETAXEL
     Indication: Adenocarcinoma
     Dosage: 70-85MG/M2
     Route: 042
  2. CISPLATIN [Concomitant]
     Active Substance: CISPLATIN
     Indication: Hepatic cancer
     Dosage: 80MG/M2 IV DAY 1
     Route: 042
  3. CAPECITABINE [Concomitant]
     Active Substance: CAPECITABINE
     Indication: Hepatic cancer
     Dosage: 1000MG/M2 ORALLY TWICE DAILY ON DAYS 2-14
     Route: 048

REACTIONS (1)
  - Onycholysis [Recovering/Resolving]
